FAERS Safety Report 23808475 (Version 1)
Quarter: 2024Q2

REPORT INFORMATION
  Report Type: Spontaneous
  Country: US (occurrence: US)
  Receive Date: 20240502
  Receipt Date: 20240502
  Transmission Date: 20240716
  Serious: No
  Sender: FDA-Public Use
  Company Number: US-PFIZER INC-202400096695

PATIENT
  Age: 20 Year
  Sex: Female
  Weight: 54.422 kg

DRUGS (3)
  1. SPIRONOLACTONE [Suspect]
     Active Substance: SPIRONOLACTONE
     Indication: Acne
     Dosage: 50 MG TWICE A DAY
     Dates: start: 20221126
  2. ADAPALENE [Concomitant]
     Active Substance: ADAPALENE
     Dosage: UNK
     Dates: start: 20221126
  3. BENZOYL PEROXIDE [Concomitant]
     Active Substance: BENZOYL PEROXIDE
     Dosage: UNK
     Dates: start: 20221126

REACTIONS (2)
  - Amenorrhoea [Not Recovered/Not Resolved]
  - Off label use [Unknown]

NARRATIVE: CASE EVENT DATE: 20221126
